FAERS Safety Report 7562131-7 (Version None)
Quarter: 2011Q2

REPORT INFORMATION
  Report Type: 
  Country: None (occurrence: None)
  Receive Date: 20110622
  Receipt Date: 20110615
  Transmission Date: 20111010
  Serious: Yes (Death, Other)
  Sender: FDA-Public Use
  Company Number: US-BRISTOL-MYERS SQUIBB COMPANY-15835002

PATIENT
  Age: 33 Year
  Sex: Male

DRUGS (2)
  1. ABILIFY [Suspect]
     Indication: BIPOLAR DISORDER
  2. ABILIFY [Suspect]
     Indication: SCHIZOPHRENIA

REACTIONS (5)
  - COMPLETED SUICIDE [None]
  - PARANOIA [None]
  - CRYING [None]
  - INSOMNIA [None]
  - PANIC ATTACK [None]
